FAERS Safety Report 23518071 (Version 2)
Quarter: 2024Q2

REPORT INFORMATION
  Report Type: Report from Study
  Country: US (occurrence: US)
  Receive Date: 20240213
  Receipt Date: 20240403
  Transmission Date: 20240716
  Serious: No
  Sender: FDA-Public Use
  Company Number: US-AGIOS-2402US03645

PATIENT
  Sex: Male

DRUGS (1)
  1. MITAPIVAT [Suspect]
     Active Substance: MITAPIVAT
     Indication: Pyruvate kinase deficiency anaemia
     Dosage: 20 MILLIGRAM
     Route: 065
     Dates: start: 20240110

REACTIONS (4)
  - Haemoglobin decreased [Unknown]
  - Dyspnoea [Unknown]
  - Ocular icterus [Unknown]
  - Nasopharyngitis [Recovered/Resolved]
